FAERS Safety Report 6404041-4 (Version None)
Quarter: 2009Q4

REPORT INFORMATION
  Report Type: 
  Country: None (occurrence: None)
  Receive Date: 20091016
  Receipt Date: 20091012
  Transmission Date: 20100525
  Serious: Yes (Death, Hospitalization)
  Sender: FDA-Public Use
  Company Number: DE-AVENTIS-200912563DE

PATIENT
  Age: 78 Year
  Sex: Female
  Weight: 61 kg

DRUGS (3)
  1. ARAVA [Suspect]
     Route: 048
     Dates: start: 20090603, end: 20090802
  2. LYRICA [Concomitant]
     Indication: POLYNEUROPATHY
     Route: 048
  3. NOVALGIN                           /00039501/ [Concomitant]
     Indication: PAIN
     Route: 048
     Dates: start: 20090709

REACTIONS (1)
  - AGRANULOCYTOSIS [None]
